FAERS Safety Report 13230028 (Version 2)
Quarter: 2017Q1

REPORT INFORMATION
  Report Type: Spontaneous
  Country: IT (occurrence: IT)
  Receive Date: 20170214
  Receipt Date: 20170215
  Transmission Date: 20170428
  Serious: Yes (Other)
  Sender: FDA-Public Use
  Company Number: IT-TEVA-704214ACC

PATIENT
  Age: 74 Year
  Sex: Male

DRUGS (8)
  1. METOPROLOL. [Concomitant]
     Active Substance: METOPROLOL
  2. COLCHICINE. [Suspect]
     Active Substance: COLCHICINE
     Indication: GOUTY ARTHRITIS
     Route: 065
  3. RASBURICASE [Suspect]
     Active Substance: RASBURICASE
     Indication: HYPERURICAEMIA
     Route: 042
  4. RAMIPRIL. [Concomitant]
     Active Substance: RAMIPRIL
  5. LOSARTAN POTASSIUM. [Concomitant]
     Active Substance: LOSARTAN POTASSIUM
  6. ALLOPURINOL. [Suspect]
     Active Substance: ALLOPURINOL
     Indication: GOUTY ARTHRITIS
     Route: 065
  7. AMOXICILLIN. [Interacting]
     Active Substance: AMOXICILLIN
     Indication: URINARY TRACT INFECTION
     Route: 065
  8. LACTATE BICARBONATE [Concomitant]

REACTIONS (6)
  - Hypersensitivity [Unknown]
  - Hypersensitivity vasculitis [Unknown]
  - Petechiae [Unknown]
  - Nausea [Unknown]
  - Drug interaction [Unknown]
  - Diarrhoea [Unknown]
